FAERS Safety Report 16780824 (Version 1)
Quarter: 2019Q3

REPORT INFORMATION
  Report Type: Spontaneous
  Country: CA (occurrence: CA)
  Receive Date: 20190906
  Receipt Date: 20190906
  Transmission Date: 20191005
  Serious: Yes (Hospitalization)
  Sender: FDA-Public Use
  Company Number: CA-PFIZER INC-2019381510

PATIENT
  Age: 45 Year
  Sex: Male
  Weight: 85 kg

DRUGS (4)
  1. METOPROLOL. [Concomitant]
     Active Substance: METOPROLOL
     Dosage: UNK
  2. HEPARIN SODIUM. [Suspect]
     Active Substance: HEPARIN SODIUM
     Dosage: UNK, (TOTAL)
     Route: 042
  3. XARELTO [Suspect]
     Active Substance: RIVAROXABAN
     Indication: ATRIAL FIBRILLATION
     Dosage: 20 MG, 1X/DAY
     Route: 048
  4. ASA [Concomitant]
     Active Substance: ASPIRIN
     Dosage: UNK

REACTIONS (9)
  - Alanine aminotransferase increased [Recovered/Resolved with Sequelae]
  - Amnesia [Recovered/Resolved with Sequelae]
  - Aspartate aminotransferase increased [Recovered/Resolved with Sequelae]
  - Cerebral infarction [Recovered/Resolved with Sequelae]
  - Gamma-glutamyltransferase increased [Recovered/Resolved with Sequelae]
  - Blood alkaline phosphatase increased [Recovered/Resolved with Sequelae]
  - Blood lactate dehydrogenase increased [Recovered/Resolved with Sequelae]
  - Heparin-induced thrombocytopenia [Recovered/Resolved with Sequelae]
  - Platelet count decreased [Recovered/Resolved with Sequelae]
